FAERS Safety Report 16817510 (Version 1)
Quarter: 2019Q3

REPORT INFORMATION
  Report Type: Spontaneous
  Country: DE (occurrence: DE)
  Receive Date: 20190917
  Receipt Date: 20190917
  Transmission Date: 20191005
  Serious: Yes (Other)
  Sender: FDA-Public Use
  Company Number: DE-MYLANLABS-2019M1086305

PATIENT
  Age: 70 Year
  Sex: Female

DRUGS (5)
  1. NEPRESOL                           /00017903/ [Concomitant]
     Active Substance: DIHYDRALAZINE MESYLATE
     Indication: PRODUCT USED FOR UNKNOWN INDICATION
     Dosage: UNK
     Route: 065
  2. CANDESARTAN. [Suspect]
     Active Substance: CANDESARTAN
     Indication: PRODUCT USED FOR UNKNOWN INDICATION
     Dosage: UNK
     Route: 065
  3. METOPROLOLSUCCINAT 1 A PHARMA [Suspect]
     Active Substance: METOPROLOL SUCCINATE
     Dosage: 0.5 DF, QD
     Route: 065
     Dates: start: 201903
  4. METOPROLOLSUCCINAT 1 A PHARMA [Suspect]
     Active Substance: METOPROLOL SUCCINATE
     Indication: PRODUCT USED FOR UNKNOWN INDICATION
     Dosage: 2 DOSAGE FORM, QD
     Route: 065
  5. AMLODIPINE [Suspect]
     Active Substance: AMLODIPINE BESYLATE
     Indication: PRODUCT USED FOR UNKNOWN INDICATION
     Dosage: 5 MG, QD
     Route: 065

REACTIONS (7)
  - Gastrointestinal infection [Unknown]
  - Malaise [Unknown]
  - Peripheral swelling [Unknown]
  - Pigmentation disorder [Unknown]
  - Blood pressure increased [Unknown]
  - Drug intolerance [Unknown]
  - Fluid retention [Unknown]
